FAERS Safety Report 20790239 (Version 1)
Quarter: 2022Q2

REPORT INFORMATION
  Report Type: Spontaneous
  Country: FR (occurrence: FR)
  Receive Date: 20220505
  Receipt Date: 20220505
  Transmission Date: 20220721
  Serious: Yes (Death, Other)
  Sender: FDA-Public Use
  Company Number: FR-STRIDES ARCOLAB LIMITED-2022SP004944

PATIENT
  Age: 40 Year
  Sex: Female

DRUGS (23)
  1. DOXORUBICIN [Suspect]
     Active Substance: DOXORUBICIN
     Indication: Lymphoma
     Dosage: UNK, (SECOND LINE THERAPY) (STOP DATE AUG 2018)
     Route: 065
  2. PREDNISOLONE [Suspect]
     Active Substance: PREDNISOLONE
     Indication: Lymphoma
     Dosage: UNK
     Route: 065
  3. PREDNISOLONE [Suspect]
     Active Substance: PREDNISOLONE
     Indication: Renal transplant
     Dosage: UNK, (SECOND LINE CHEMOTHERAPY) (STOP DATE AUG 2018)
     Route: 065
  4. PREDNISOLONE [Suspect]
     Active Substance: PREDNISOLONE
     Dosage: UNK
     Route: 065
  5. PREDNISOLONE [Suspect]
     Active Substance: PREDNISOLONE
     Dosage: UNK, (GRADUALLY DISCONTINUED)
     Route: 065
  6. PREDNISOLONE [Suspect]
     Active Substance: PREDNISOLONE
     Dosage: UNK
     Route: 065
  7. CARBOPLATIN [Suspect]
     Active Substance: CARBOPLATIN
     Indication: Lymphoma
     Dosage: UNK, (THIRD-LINE CHEMOTHERAPY) (START DATE FEB 2019)
     Route: 065
  8. ETOPOSIDE [Suspect]
     Active Substance: ETOPOSIDE
     Indication: Lymphoma
     Dosage: UNK, (THIRD-LINE CHEMOTHERAPY) (START DATE FEB 2019)
     Route: 065
  9. ETOPOSIDE [Suspect]
     Active Substance: ETOPOSIDE
     Dosage: UNK, (RECEIVED AFTER AUTOLOGOUS STEM CELL TRANSPLANTATION) (START DATE 2019)
     Route: 065
  10. METHOTREXATE [Suspect]
     Active Substance: METHOTREXATE
     Indication: Lymphoma
     Dosage: UNK, (SECOND LINE THERAPY) (STOP DATE AUG 2018)
     Route: 037
  11. RITUXIMAB [Suspect]
     Active Substance: RITUXIMAB
     Indication: Lymphoma
     Dosage: UNK, (INFUSION; FIRST LINE THERAPY ; FOR 4 WEEKS) (START DATE FEB 2018)
     Route: 065
  12. RITUXIMAB [Suspect]
     Active Substance: RITUXIMAB
     Dosage: UNK, (SECOND LINE THERAPY) (STOP DATE AUG 2018)
     Route: 065
  13. RITUXIMAB [Suspect]
     Active Substance: RITUXIMAB
     Dosage: UNK, (THIRD-LINE CHEMOTHERAPY) (START DATE FEB 2019)
     Route: 065
  14. RITUXIMAB [Suspect]
     Active Substance: RITUXIMAB
     Dosage: UNK, (BRIDGING CHEMOTHERAPY) (START DATE JUL 2019)
     Route: 065
  15. RITUXIMAB [Suspect]
     Active Substance: RITUXIMAB
     Dosage: UNK (SALVAGE TREATMENT) (START DATE 2019 AND STOP DATE 2020)
     Route: 065
  16. CYTARABINE [Suspect]
     Active Substance: CYTARABINE
     Indication: Lymphoma
     Dosage: UNK, (SECOND LINE THERAPY) (STOP DATE AUG 2018)
     Route: 065
  17. CYTARABINE [Suspect]
     Active Substance: CYTARABINE
     Dosage: UNK, (RECEIVED AFTER AUTOLOGOUS STEM CELL TRANSPLANTATION) (START DATE 2019)
     Route: 065
  18. VINCRISTINE [Suspect]
     Active Substance: VINCRISTINE
     Indication: Lymphoma
     Dosage: UNK, (SECOND LINE THERAPY) (STOP DATE AUG 2018)
     Route: 065
     Dates: end: 201808
  19. CYCLOPHOSPHAMIDE [Suspect]
     Active Substance: CYCLOPHOSPHAMIDE
     Indication: Lymphoma
     Dosage: UNK, (SECOND LINE THERAPY) (STOP DATE AUG 2018)
     Route: 065
  20. CYCLOPHOSPHAMIDE [Suspect]
     Active Substance: CYCLOPHOSPHAMIDE
     Dosage: UNK, (LYMPHODEPLETIVE CONDITIONING) (STOP DATE JUL 2019)
     Route: 065
  21. IFOSFAMIDE [Suspect]
     Active Substance: IFOSFAMIDE
     Indication: Lymphoma
     Dosage: UNK, (THIRD-LINE CHEMOTHERAPY) (START DATE FEB 2019)
     Route: 065
     Dates: start: 201902
  22. CARMUSTINE [Suspect]
     Active Substance: CARMUSTINE
     Indication: Lymphoma
     Dosage: UNK, (RECEIVED AFTER AUTOLOGOUS STEM CELL TRANSPLANTATION) (START DATE 2019)
     Route: 065
     Dates: start: 2019
  23. MELPHALAN [Suspect]
     Active Substance: MELPHALAN
     Indication: Lymphoma
     Dosage: UNK, (RECEIVED AFTER AUTOLOGOUS STEM CELL TRANSPLANTATION) (START DATE 2019)
     Route: 065

REACTIONS (5)
  - Drug ineffective [Fatal]
  - Pancytopenia [Unknown]
  - Acute kidney injury [Unknown]
  - Aspergillus infection [Fatal]
  - Off label use [Unknown]
